FAERS Safety Report 15614278 (Version 1)
Quarter: 2018Q4

REPORT INFORMATION
  Report Type: Spontaneous
  Country: AT (occurrence: AT)
  Receive Date: 20181113
  Receipt Date: 20181113
  Transmission Date: 20190205
  Serious: Yes (Other)
  Sender: FDA-Public Use
  Company Number: AT-MYLANLABS-2018M1073666

PATIENT
  Age: 29 Year
  Sex: Female

DRUGS (3)
  1. PIXANTRONE [Suspect]
     Active Substance: PIXANTRONE
     Indication: HODGKIN^S DISEASE
     Dosage: UNK
     Route: 065
  2. PACLITAXEL. [Suspect]
     Active Substance: PACLITAXEL
     Indication: HODGKIN^S DISEASE
     Dosage: UNK MG/KG, UNK
     Route: 065
  3. G-CSF [Suspect]
     Active Substance: GRANULOCYTE COLONY-STIMULATING FACTOR NOS
     Indication: HODGKIN^S DISEASE
     Dosage: UNK
     Route: 065

REACTIONS (2)
  - Product use in unapproved indication [Unknown]
  - Sepsis [Unknown]

NARRATIVE: CASE EVENT DATE: 201601
